FAERS Safety Report 4445978-5 (Version None)
Quarter: 2004Q3

REPORT INFORMATION
  Report Type: 
  Country: None (occurrence: None)
  Receive Date: 20040910
  Receipt Date: 20040824
  Transmission Date: 20050211
  Serious: Yes (Hospitalization)
  Sender: FDA-Public Use
  Company Number: US-ROCHE-378674

PATIENT
  Age: 53 Year
  Sex: Male
  Weight: 98.4 kg

DRUGS (10)
  1. PEGASYS [Suspect]
     Indication: HEPATITIS C
     Dosage: TAKEN ON MONDAY. PATIENT FINISHED 48-WEEK TREATMENT.
     Route: 058
     Dates: start: 20030908, end: 20040815
  2. COPEGUS [Suspect]
     Indication: HEPATITIS C
     Dosage: PATIENT FINISHED 48-WEEK TREATMENT.
     Route: 048
     Dates: start: 20030908, end: 20040815
  3. AVANDIA [Concomitant]
  4. AMARYL [Concomitant]
  5. NEURONTIN [Concomitant]
     Dosage: GIVEN FOR TINGLING IN ARMS AND LEGS
  6. ASPIRIN [Concomitant]
  7. PLAVIX [Concomitant]
  8. PROZAC [Concomitant]
     Indication: DEPRESSION
  9. XANAX [Concomitant]
     Indication: ANXIETY
     Dates: end: 20040615
  10. UNIVASC [Concomitant]
     Dosage: INDICATION: KIDNEYS

REACTIONS (9)
  - ANAEMIA [None]
  - ANXIETY [None]
  - ARTHRITIS [None]
  - CONVULSION [None]
  - DEPRESSION [None]
  - FLASHBACK [None]
  - INFLUENZA LIKE ILLNESS [None]
  - INFUSION SITE REACTION [None]
  - IRRITABILITY [None]
